FAERS Safety Report 4413238-4 (Version None)
Quarter: 2004Q3

REPORT INFORMATION
  Report Type: 
  Country: None (occurrence: None)
  Receive Date: 20040802
  Receipt Date: 20040722
  Transmission Date: 20050211
  Serious: Yes (Death, Hospitalization)
  Sender: FDA-Public Use
  Company Number: JP-BRISTOL-MYERS SQUIBB COMPANY-12649331

PATIENT
  Age: 59 Year
  Sex: Male

DRUGS (4)
  1. ZERIT [Suspect]
     Indication: HIV INFECTION
     Dosage: INTERRUPTED FROM 02- TO 21-AUG-2003
     Route: 048
     Dates: start: 19990224, end: 20031201
  2. EPIVIR [Suspect]
     Indication: HIV INFECTION
     Dosage: INTERRUPTED FROM 02- TO 21-AUG-2003
     Route: 048
     Dates: start: 19990224, end: 20031201
  3. VIRACEPT [Suspect]
     Indication: HIV INFECTION
     Dosage: INTERRUPTED FROM 02- TO 21-AUG-2003
     Route: 048
     Dates: start: 19990224, end: 20031201
  4. BASEN [Concomitant]
     Route: 048

REACTIONS (3)
  - CHEST PAIN [None]
  - HEPATIC NEOPLASM MALIGNANT [None]
  - JAUNDICE CHOLESTATIC [None]
